FAERS Safety Report 11351320 (Version 1)
Quarter: 2015Q3

REPORT INFORMATION
  Report Type: Spontaneous
  Country: US (occurrence: US)
  Receive Date: 20150807
  Receipt Date: 20150807
  Transmission Date: 20151125
  Serious: No
  Sender: FDA-Public Use
  Company Number: US-JNJFOC-20150509873

PATIENT
  Age: 57 Year
  Sex: Female
  Weight: 51.71 kg

DRUGS (1)
  1. WOMENS ROGAINE [Suspect]
     Active Substance: MINOXIDIL
     Indication: ALOPECIA
     Dosage: 2 %, 1/2 CAPFUL 1X WHEN SHE WASHES HER HAIR
     Route: 061

REACTIONS (2)
  - Wrong technique in product usage process [Unknown]
  - Off label use [Unknown]
